FAERS Safety Report 4536875-5 (Version None)
Quarter: 2004Q4

REPORT INFORMATION
  Report Type: 
  Country: None (occurrence: None)
  Receive Date: 20041223
  Receipt Date: 20041215
  Transmission Date: 20050328
  Serious: Yes (Hospitalization)
  Sender: FDA-Public Use
  Company Number: FR-GLAXOSMITHKLINE-B0361818A

PATIENT
  Age: 86 Year
  Sex: Male
  Weight: 84 kg

DRUGS (11)
  1. AUGMENTIN '125' [Suspect]
     Indication: CYSTITIS
     Dosage: 3G PER DAY
     Route: 042
     Dates: start: 20041011, end: 20041020
  2. OFLOCET [Suspect]
     Indication: CYSTITIS
     Dosage: 200MG TWICE PER DAY
     Route: 042
     Dates: start: 20041011, end: 20041018
  3. OFLOCET [Suspect]
     Dosage: 200MG PER DAY
     Route: 048
     Dates: start: 20041013, end: 20041013
  4. METFORMIN HCL [Concomitant]
     Indication: PANCREATIC DISORDER
     Dosage: 1UNIT TWICE PER DAY
     Route: 048
  5. DITROPAN [Concomitant]
     Indication: PAIN
     Dosage: .5UNIT TWICE PER DAY
     Route: 048
  6. LIORESAL [Concomitant]
     Indication: QUADRIPARESIS
     Route: 048
  7. RIVOTRIL [Concomitant]
     Route: 048
  8. OGAST [Concomitant]
  9. BREXIN [Concomitant]
  10. RYTHMOL [Concomitant]
  11. DAFLON [Concomitant]

REACTIONS (3)
  - CONFUSIONAL STATE [None]
  - DISORIENTATION [None]
  - MEDICATION ERROR [None]
